FAERS Safety Report 9461518 (Version 2)
Quarter: 2013Q3

REPORT INFORMATION
  Report Type: Report from Study
  Country: NL (occurrence: NL)
  Receive Date: 20130816
  Receipt Date: 20130920
  Transmission Date: 20140515
  Serious: Yes (Death)
  Sender: FDA-Public Use
  Company Number: PHHY2013NL088052

PATIENT
  Sex: Male

DRUGS (7)
  1. ZOMETA [Suspect]
     Indication: METASTASES TO BONE
     Dosage: 4 MG, EVERY 4 WEEKS
     Route: 042
     Dates: start: 2012
  2. ZOMETA [Suspect]
     Dosage: 4 MG, EVERY 4 WEEKS
     Route: 042
     Dates: start: 20130702
  3. ZOMETA [Suspect]
     Dosage: 4 MG, EVERY 4 WEEKS
     Route: 042
     Dates: start: 20130730
  4. MORPHINE [Concomitant]
     Dosage: UNK UKN, UNK
  5. LUCRIN [Concomitant]
     Dosage: UNK UKN, UNK
  6. PARACETAMOL [Concomitant]
     Dosage: UNK UKN, UNK
  7. DUROGESIC [Concomitant]
     Dosage: UNK UKN, UNK

REACTIONS (1)
  - Prostate cancer [Fatal]
